FAERS Safety Report 10110005 (Version 2)
Quarter: 2014Q4

REPORT INFORMATION
  Report Type: Spontaneous
  Country: US (occurrence: None)
  Receive Date: 20140423
  Receipt Date: 20141223
  Transmission Date: 20150528
  Serious: Yes (Death, Hospitalization)
  Sender: FDA-Public Use
  Company Number: INS201404-000043

PATIENT
  Age: 25 Year
  Sex: Male
  Weight: 107 kg

DRUGS (9)
  1. FENTANYL PATCHES (FENTANYL) (FENTANYL) [Concomitant]
  2. SUBSYS [Suspect]
     Active Substance: FENTANYL
     Indication: PAIN
     Dates: start: 201308, end: 20140205
  3. ARIXTRA (FONDAPARINUX) (FONDAPARINUX) [Concomitant]
  4. PHENERGAN (PROMETHAZINE HC1) (PROMETHAZINE HC1) [Concomitant]
  5. LANTUS (INSULIN) (INSULIN) [Concomitant]
  6. LIDOCAINE PATCH (LIDOCAINE) (LIDOCAINE) [Concomitant]
  7. PROTONIX (PANTOPRAZOLE) (PANTOPRAZOLE) [Concomitant]
  8. HUMALOG [Concomitant]
     Active Substance: INSULIN LISPRO
  9. ADAVAN (ATIVAN) (ATIVAN) [Concomitant]

REACTIONS (3)
  - Disease complication [None]
  - Product use issue [None]
  - Internal haemorrhage [None]
